FAERS Safety Report 5776399-0 (Version None)
Quarter: 2008Q2

REPORT INFORMATION
  Report Type: 
  Country: None (occurrence: None)
  Receive Date: 20080618
  Receipt Date: 20080605
  Transmission Date: 20081010
  Serious: No
  Sender: FDA-Public Use
  Company Number: US-BAYER-200825081NA

PATIENT
  Age: 22 Year
  Sex: Female
  Weight: 45 kg

DRUGS (1)
  1. YAZ [Suspect]
     Indication: DYSMENORRHOEA
     Route: 048
     Dates: start: 20070501, end: 20080604

REACTIONS (2)
  - OEDEMA PERIPHERAL [None]
  - URTICARIA [None]
